FAERS Safety Report 10200214 (Version 2)
Quarter: 2014Q2

REPORT INFORMATION
  Report Type: Spontaneous
  Country: US (occurrence: US)
  Receive Date: 20140527
  Receipt Date: 20140623
  Transmission Date: 20141212
  Serious: Yes (Death, Hospitalization, Other)
  Sender: FDA-Public Use
  Company Number: US-BAXTER-2014BAX025578

PATIENT
  Sex: Female

DRUGS (16)
  1. IFOSFAMIDE FOR INJECTION [Suspect]
     Indication: UTERINE CANCER
     Dosage: 1 GRAM/METER SQUARED
     Route: 042
     Dates: start: 20140401, end: 20140403
  2. COUMADIN [Concomitant]
     Indication: ATRIAL FIBRILLATION
  3. BABY ASPIRIN [Concomitant]
     Indication: PRODUCT USED FOR UNKNOWN INDICATION
  4. LASIX [Concomitant]
     Indication: PRODUCT USED FOR UNKNOWN INDICATION
  5. NEURONTIN [Concomitant]
     Indication: PRODUCT USED FOR UNKNOWN INDICATION
  6. POTASSIUM [Concomitant]
     Indication: PRODUCT USED FOR UNKNOWN INDICATION
  7. ATENOLOL [Concomitant]
     Indication: PRODUCT USED FOR UNKNOWN INDICATION
  8. VITAMIN C [Concomitant]
     Indication: PRODUCT USED FOR UNKNOWN INDICATION
  9. NORCO [Concomitant]
     Indication: PAIN
  10. LANTUS INSULIN [Concomitant]
     Indication: DIABETES MELLITUS
  11. VITAMIN D3 [Concomitant]
     Indication: PRODUCT USED FOR UNKNOWN INDICATION
  12. MULTIVITAMIN [Concomitant]
     Indication: PRODUCT USED FOR UNKNOWN INDICATION
  13. PRAVASTATIN [Concomitant]
     Indication: PRODUCT USED FOR UNKNOWN INDICATION
  14. ISOSORBIDE MONONITRATE ER [Concomitant]
     Indication: PRODUCT USED FOR UNKNOWN INDICATION
  15. INSULIN [Concomitant]
     Indication: DIABETES MELLITUS
     Dosage: SLIDING SCALE
  16. NYSTATIN [Concomitant]
     Indication: CANDIDA INFECTION

REACTIONS (2)
  - Uterine cancer [Fatal]
  - Neurotoxicity [Fatal]
